FAERS Safety Report 5063843-X (Version None)
Quarter: 2006Q3

REPORT INFORMATION
  Report Type: 
  Country: None (occurrence: None)
  Receive Date: 20060726
  Receipt Date: 20060726
  Transmission Date: 20061208
  Serious: No
  Sender: FDA-Public Use
  Company Number: None

PATIENT
  Age: 57 Year
  Sex: Female
  Weight: 90 kg

DRUGS (1)
  1. GLEEVEC [Suspect]
     Indication: WALDENSTROM'S MACROGLOBULINAEMIA
     Dosage: 400MG PO QD
     Route: 048
     Dates: start: 20060515, end: 20060626

REACTIONS (2)
  - BONE MARROW FAILURE [None]
  - PANCYTOPENIA [None]
